FAERS Safety Report 4450209-6 (Version None)
Quarter: 2004Q3

REPORT INFORMATION
  Report Type: 
  Country: None (occurrence: None)
  Receive Date: 20040914
  Receipt Date: 20040902
  Transmission Date: 20050211
  Serious: Yes (Other)
  Sender: FDA-Public Use
  Company Number: DEU-2004-0000965

PATIENT
  Age: 49 Year
  Sex: Male

DRUGS (3)
  1. MORPHINE SULFATE [Suspect]
     Dosage: INTRATHECAL
     Route: 037
  2. MORPHINE SULFATE [Concomitant]
  3. DROPERIDOL [Concomitant]

REACTIONS (7)
  - ANDROGEN DEFICIENCY [None]
  - BLOOD TESTOSTERONE DECREASED [None]
  - BREAST PAIN [None]
  - DISEASE RECURRENCE [None]
  - ERECTILE DYSFUNCTION [None]
  - FATIGUE [None]
  - GYNAECOMASTIA [None]
